FAERS Safety Report 20499201 (Version 2)
Quarter: 2022Q1

REPORT INFORMATION
  Report Type: Report from Study
  Country: CA (occurrence: CA)
  Receive Date: 20220222
  Receipt Date: 20220309
  Transmission Date: 20220423
  Serious: No
  Sender: FDA-Public Use
  Company Number: CA-JNJFOC-20220233111

PATIENT
  Age: 57 Year
  Sex: Male

DRUGS (6)
  1. SELEXIPAG [Suspect]
     Active Substance: SELEXIPAG
     Indication: Pulmonary hypertension
     Route: 048
     Dates: start: 20210412
  2. ADCIRCA [Concomitant]
     Active Substance: TADALAFIL
  3. AMBRISENTAN [Concomitant]
     Active Substance: AMBRISENTAN
  4. FUROSEMIDE [Concomitant]
     Active Substance: FUROSEMIDE
  5. RIVAROXABAN [Concomitant]
     Active Substance: RIVAROXABAN
  6. PANTOPRAZOLE [Concomitant]
     Active Substance: PANTOPRAZOLE

REACTIONS (3)
  - Headache [Unknown]
  - Incorrect dose administered [Unknown]
  - Off label use [Unknown]
